FAERS Safety Report 17945896 (Version 2)
Quarter: 2021Q1

REPORT INFORMATION
  Report Type: Spontaneous
  Country: FR (occurrence: FR)
  Receive Date: 20200625
  Receipt Date: 20210313
  Transmission Date: 20210419
  Serious: Yes (Other)
  Sender: FDA-Public Use
  Company Number: NVSC2020FR173824

PATIENT
  Age: 7 Year
  Sex: Male
  Weight: 27 kg

DRUGS (7)
  1. POLARAMINE [Concomitant]
     Active Substance: DEXCHLORPHENIRAMINE MALEATE
     Indication: PREMEDICATION
     Dosage: 7.5 MG, QD (2.5 MG, 3X/DAY)
     Route: 042
     Dates: start: 20190520, end: 20190531
  2. ATGAM [Suspect]
     Active Substance: EQUINE THYMOCYTE IMMUNE GLOBULIN
     Indication: MYELOSUPPRESSION
     Dosage: 40 MG/KG, QD (40 MG/KG, DAILY TOTAL DOSE 440 MG)
     Route: 042
     Dates: start: 20190520
  3. LANSOPRAZOLE. [Concomitant]
     Active Substance: LANSOPRAZOLE
     Indication: PROPHYLAXIS
     Dosage: 15 MG, QD (15 MG, DAILY)
     Route: 048
     Dates: start: 20190520, end: 20190616
  4. PANTOPRAZOLE [Concomitant]
     Active Substance: PANTOPRAZOLE
     Indication: PROPHYLAXIS
     Dosage: 15 MG, QD (15 MG, 1X/DAY)
     Route: 042
     Dates: start: 20190520, end: 20190616
  5. CYCLOSPORINE. [Suspect]
     Active Substance: CYCLOSPORINE
     Indication: MYELOSUPPRESSION
     Dosage: UNK (2.5?5 MG/KG (^TR 200^; PLANNED DOSAGE))
     Route: 065
  6. METHYLPREDNISOLONE. [Concomitant]
     Active Substance: METHYLPREDNISOLONE
     Indication: PREMEDICATION
     Dosage: 25 MG, QD (25 MG, 1X/DAY)
     Route: 042
     Dates: start: 20190520, end: 20190523
  7. PARACETAMOL [Concomitant]
     Active Substance: ACETAMINOPHEN
     Indication: PREMEDICATION
     Dosage: 300 MG, CYCLIC (300 MG, CYCLIC SIX TIMES PER DAY)
     Route: 065
     Dates: start: 20190520, end: 20190531

REACTIONS (2)
  - Infusion related reaction [Recovered/Resolved]
  - Urticaria [Recovered/Resolved]

NARRATIVE: CASE EVENT DATE: 20190520
